FAERS Safety Report 20737642 (Version 1)
Quarter: 2022Q2

REPORT INFORMATION
  Report Type: Report from Study
  Country: CA (occurrence: CA)
  Receive Date: 20220422
  Receipt Date: 20220422
  Transmission Date: 20220721
  Serious: Yes (Death)
  Sender: FDA-Public Use
  Company Number: CA-NOVARTISPH-NVSC2022CA092904

PATIENT
  Age: 60 Year
  Sex: Female

DRUGS (1)
  1. FULVESTRANT [Suspect]
     Active Substance: FULVESTRANT
     Indication: Hormone receptor positive breast cancer
     Dosage: UNK
     Route: 065

REACTIONS (1)
  - Death [Fatal]

NARRATIVE: CASE EVENT DATE: 20210529
